FAERS Safety Report 12423513 (Version 1)
Quarter: 2016Q2

REPORT INFORMATION
  Report Type: Spontaneous
  Country: US (occurrence: None)
  Receive Date: 20160531
  Receipt Date: 20160531
  Transmission Date: 20160815
  Serious: Yes (Life-Threatening, Disabling)
  Sender: FDA-Public Use
  Company Number: None

PATIENT
  Age: 67 Year
  Sex: Female
  Weight: 64.41 kg

DRUGS (9)
  1. LANTUS [Suspect]
     Active Substance: INSULIN GLARGINE
     Indication: TYPE 1 DIABETES MELLITUS
     Dosage: 12 UNITS-AM, 6 UNITS-PM TWICE DAILY INJECTION
     Dates: start: 20050622
  2. BSA CLONED APIDRA INSULIN [Concomitant]
  3. CORCUMIN [Concomitant]
  4. HAWTHORNE BERRY [Concomitant]
  5. LEVOTHYROXIN [Concomitant]
     Active Substance: LEVOTHYROXINE
  6. CAYENNE PEPPER [Concomitant]
     Active Substance: CAPSICUM
  7. CAMG [Concomitant]
  8. VITAMIN B12 [Concomitant]
     Active Substance: CYANOCOBALAMIN
  9. B-6 [Concomitant]

REACTIONS (2)
  - Flatulence [None]
  - Blood glucose decreased [None]

NARRATIVE: CASE EVENT DATE: 20160316
